FAERS Safety Report 4896620-0 (Version None)
Quarter: 2006Q1

REPORT INFORMATION
  Report Type: 
  Country: None (occurrence: None)
  Receive Date: 20060131
  Receipt Date: 20060118
  Transmission Date: 20060701
  Serious: Yes (Hospitalization)
  Sender: FDA-Public Use
  Company Number: US-AMGEN-US165572

PATIENT
  Sex: Female

DRUGS (12)
  1. ARANESP [Suspect]
     Indication: ANAEMIA
     Route: 058
     Dates: start: 20050101
  2. ASPIRIN [Concomitant]
     Route: 048
  3. COREG [Concomitant]
     Route: 048
  4. FUROSEMIDE [Concomitant]
     Route: 048
  5. SPIRONOLACTONE [Concomitant]
     Route: 048
  6. PRILOSEC [Concomitant]
     Route: 048
  7. ALPRAZOLAM [Concomitant]
  8. ALLOPURINOL [Concomitant]
     Route: 048
  9. FOLIC ACID [Concomitant]
     Route: 048
  10. NAPROSYN [Concomitant]
     Route: 048
  11. AVANDIA [Concomitant]
     Route: 048
  12. TYLENOL-500 [Concomitant]

REACTIONS (3)
  - BLEPHARITIS [None]
  - KNEE ARTHROPLASTY [None]
  - PAIN IN EXTREMITY [None]
